FAERS Safety Report 7988465-X (Version None)
Quarter: 2011Q4

REPORT INFORMATION
  Report Type: 
  Country: None (occurrence: None)
  Receive Date: 20111216
  Receipt Date: 20111213
  Transmission Date: 20120403
  Serious: Yes (Other)
  Sender: FDA-Public Use
  Company Number: CA-PFIZER INC-2011304558

PATIENT
  Age: 69 Year
  Sex: Female
  Weight: 102.49 kg

DRUGS (9)
  1. MIRALAX [Concomitant]
     Dosage: 7.5 G, 1X/DAY
  2. TENORMIN [Concomitant]
     Dosage: 100 MG, 1X/DAY IN AM
  3. SEROQUEL [Concomitant]
     Dosage: 25 MG AT BEDTIME
  4. LACRI-LUBE [Concomitant]
     Dosage: IN BOTH EYES AT BEDTIME
  5. REMERON [Concomitant]
     Dosage: 15 MG AT BEDTIME
  6. ACETAMINOPHEN [Concomitant]
     Dosage: 650 MG, 4X/DAY
     Route: 048
  7. PREVACID [Concomitant]
     Dosage: 30 MG, 1X/DAY IN AM
  8. CORTATE [Concomitant]
     Indication: ERYTHEMA
     Dosage: AS NEEDED
  9. CELEBREX [Suspect]
     Indication: OSTEOARTHRITIS
     Dosage: 100 MG, 1X/DAY
     Route: 048
     Dates: start: 20110515, end: 20110523

REACTIONS (3)
  - OEDEMA PERIPHERAL [None]
  - HEAT OEDEMA [None]
  - PEMPHIGOID [None]
